FAERS Safety Report 7444167-X (Version None)
Quarter: 2011Q2

REPORT INFORMATION
  Report Type: 
  Country: None (occurrence: None)
  Receive Date: 20110419
  Receipt Date: 20110404
  Transmission Date: 20111010
  Serious: Yes (Hospitalization)
  Sender: FDA-Public Use
  Company Number: US-ACCORD-008752

PATIENT
  Age: 45 Year
  Sex: Female

DRUGS (11)
  1. ALENDRONATE SODIUM [Concomitant]
  2. FEXOFENADINE HCL [Concomitant]
  3. PREDNISONE [Concomitant]
  4. PROPOXYPHENE (PROPOXYPHENE) [Concomitant]
  5. LEVETIRACETAM [Suspect]
     Indication: PARTIAL SEIZURES
     Dosage: 500.00-MG-2.00 / TIMES -ER 1.00 DAYS
  6. ACETAMINOPHN (ACETAMINOPHEN) [Concomitant]
  7. METHIMAZOLE (METHIMAZOLE) [Concomitant]
  8. PANTOPRAZOLE [Concomitant]
  9. INSULIN (INSULIN) [Concomitant]
  10. ATENOLOL [Concomitant]
  11. IPRATROPIUM BROMIDE [Concomitant]

REACTIONS (4)
  - BODY TEMPERATURE DECREASED [None]
  - SEPTIC SHOCK [None]
  - ACUTE GENERALISED EXANTHEMATOUS PUSTULOSIS [None]
  - RESPIRATORY FAILURE [None]
